FAERS Safety Report 5518951-3 (Version None)
Quarter: 2007Q4

REPORT INFORMATION
  Report Type: 
  Country: None (occurrence: None)
  Receive Date: 20071114
  Receipt Date: 20071114
  Transmission Date: 20080405
  Serious: Yes (Hospitalization, Other)
  Sender: FDA-Public Use
  Company Number: None

PATIENT
  Age: 70 Year
  Sex: Female
  Weight: 60.3284 kg

DRUGS (3)
  1. INFLIXIMAB [Suspect]
     Indication: RHEUMATOID ARTHRITIS
     Dosage: 3 MG/KG IV  MONTHLY  IV
     Route: 042
     Dates: start: 20070301, end: 20070510
  2. NAPROSYN [Concomitant]
  3. TYLENOL [Concomitant]

REACTIONS (1)
  - TUBERCULOSIS [None]
